FAERS Safety Report 4682621-4 (Version None)
Quarter: 2005Q2

REPORT INFORMATION
  Report Type: 
  Country: None (occurrence: None)
  Receive Date: 20050606
  Receipt Date: 20050317
  Transmission Date: 20051028
  Serious: Yes (Hospitalization, Other)
  Sender: FDA-Public Use
  Company Number: PHBS2005JP03837

PATIENT
  Age: 74 Year
  Sex: Male
  Weight: 49 kg

DRUGS (5)
  1. TAMIFLU [Suspect]
     Indication: INFLUENZA
     Dosage: 75 MG, BID
     Route: 048
     Dates: start: 20050311, end: 20050314
  2. EXCEGRAN [Suspect]
     Indication: EPILEPSY
     Dosage: 100 MG, BID
     Route: 048
     Dates: start: 20050201, end: 20050314
  3. TEGRETOL [Suspect]
     Indication: EPILEPSY
     Route: 048
     Dates: start: 20050210, end: 20050201
  4. DEPAKENE [Concomitant]
     Indication: EPILEPSY
     Dosage: 800 MG/DAY
     Route: 048
     Dates: start: 20050101, end: 20050209
  5. ALEVIATIN [Concomitant]
     Indication: EPILEPSY

REACTIONS (21)
  - AGRANULOCYTOSIS [None]
  - ALANINE AMINOTRANSFERASE INCREASED [None]
  - ASPARTATE AMINOTRANSFERASE INCREASED [None]
  - BLOOD ALKALINE PHOSPHATASE INCREASED [None]
  - BLOOD LACTATE DEHYDROGENASE INCREASED [None]
  - C-REACTIVE PROTEIN INCREASED [None]
  - CONVULSION [None]
  - DRUG HYPERSENSITIVITY [None]
  - EOSINOPHIL COUNT INCREASED [None]
  - GAMMA-GLUTAMYLTRANSFERASE INCREASED [None]
  - GENERALISED ERYTHEMA [None]
  - GENITAL EROSION [None]
  - HYPERSENSITIVITY [None]
  - INFLUENZA [None]
  - LIP EROSION [None]
  - LYMPHOCYTE MORPHOLOGY ABNORMAL [None]
  - MUCOSAL EROSION [None]
  - PYREXIA [None]
  - RASH [None]
  - SOMNOLENCE [None]
  - STEVENS-JOHNSON SYNDROME [None]
